FAERS Safety Report 20772164 (Version 3)
Quarter: 2025Q2

REPORT INFORMATION
  Report Type: Report from Study
  Country: GB (occurrence: IT)
  Receive Date: 20220502
  Receipt Date: 20250619
  Transmission Date: 20250717
  Serious: Yes (Other)
  Sender: AUROBINDO
  Company Number: IT-009507513-2011ITA008592

PATIENT
  Age: 45 Year
  Sex: Female

DRUGS (11)
  1. DARUNAVIR [Suspect]
     Active Substance: DARUNAVIR
     Indication: HIV infection
     Route: 065
  2. DARUNAVIR [Suspect]
     Active Substance: DARUNAVIR
     Dosage: 2 DOSAGE FORM, ONCE A DAY
     Route: 065
  3. LAMIVUDINE [Suspect]
     Active Substance: LAMIVUDINE
     Indication: HIV infection
     Route: 065
  4. TENOFOVIR DISOPROXIL [Suspect]
     Active Substance: TENOFOVIR DISOPROXIL
     Indication: HIV infection
     Route: 065
  5. EMTRICITABINE [Suspect]
     Active Substance: EMTRICITABINE
     Indication: HIV infection
     Route: 065
  6. DARUNAVIR\RITONAVIR [Suspect]
     Active Substance: DARUNAVIR\RITONAVIR
     Indication: HIV infection
     Dosage: ONCE A DAY
     Route: 065
  7. DARUNAVIR\RITONAVIR [Suspect]
     Active Substance: DARUNAVIR\RITONAVIR
     Dosage: ONCE A DAY
     Route: 065
  8. RALTEGRAVIR POTASSIUM [Suspect]
     Active Substance: RALTEGRAVIR POTASSIUM
     Indication: HIV infection
     Route: 048
  9. RITONAVIR [Suspect]
     Active Substance: RITONAVIR
     Indication: HIV infection
     Route: 065
  10. RITONAVIR [Suspect]
     Active Substance: RITONAVIR
     Dosage: 2 DOSAGE FORM, ONCE A DAY
     Route: 065
  11. ZIDOVUDINE [Suspect]
     Active Substance: ZIDOVUDINE
     Indication: HIV infection
     Route: 065

REACTIONS (12)
  - Brain oedema [Recovered/Resolved]
  - Headache [Recovered/Resolved]
  - Peripheral venous disease [Recovered/Resolved]
  - Disease recurrence [Recovered/Resolved]
  - White matter lesion [Recovered/Resolved]
  - Nervous system disorder [Unknown]
  - CSF HIV escape syndrome [Recovered/Resolved]
  - Virologic failure [Unknown]
  - Cognitive disorder [Recovered/Resolved]
  - Drug ineffective [Unknown]
  - Labelled drug-drug interaction issue [Unknown]
  - Treatment noncompliance [Unknown]
